FAERS Safety Report 13058923 (Version 1)
Quarter: 2016Q4

REPORT INFORMATION
  Report Type: Spontaneous
  Country: US (occurrence: US)
  Receive Date: 20161223
  Receipt Date: 20161223
  Transmission Date: 20170207
  Serious: No
  Sender: FDA-Public Use
  Company Number: US-BAUSCH-BL-2016-009157

PATIENT
  Sex: Male

DRUGS (1)
  1. XENAZINE [Suspect]
     Active Substance: TETRABENAZINE
     Indication: TOURETTE^S DISORDER
     Dosage: 37.5MG AM/NOON,?25MG PM
     Route: 048
     Dates: start: 20160312

REACTIONS (3)
  - Dry eye [Unknown]
  - Somnolence [Unknown]
  - Off label use [Unknown]
